FAERS Safety Report 10879632 (Version 2)
Quarter: 2015Q2

REPORT INFORMATION
  Report Type: Spontaneous
  Country: IT (occurrence: IT)
  Receive Date: 20150302
  Receipt Date: 20150602
  Transmission Date: 20150821
  Serious: Yes (Other)
  Sender: FDA-Public Use
  Company Number: IT-PFIZER INC-2015074642

PATIENT
  Age: 54 Year
  Sex: Female

DRUGS (4)
  1. VENLAFAXINE HCL [Suspect]
     Active Substance: VENLAFAXINE HYDROCHLORIDE
     Dosage: 262 MG, TOTAL
     Route: 048
     Dates: start: 20141010, end: 20141010
  2. TRAZODONE [Suspect]
     Active Substance: TRAZODONE HYDROCHLORIDE
     Dosage: 1800 MG, TOTAL
     Route: 048
     Dates: start: 20141010
  3. ALPRAZOLAM. [Suspect]
     Active Substance: ALPRAZOLAM
     Dosage: 15 MG, TOTAL
     Route: 048
     Dates: start: 20141010, end: 20141010
  4. DELORAZEPAM [Suspect]
     Active Substance: DELORAZEPAM
     Dosage: 40 MG, TOTAL
     Route: 048
     Dates: start: 20141010, end: 20141010

REACTIONS (3)
  - Sopor [Recovering/Resolving]
  - Overdose [Recovering/Resolving]
  - Drug abuse [Recovering/Resolving]

NARRATIVE: CASE EVENT DATE: 20141010
